FAERS Safety Report 16799742 (Version 1)
Quarter: 2019Q3

REPORT INFORMATION
  Report Type: Spontaneous
  Country: US (occurrence: US)
  Receive Date: 20190912
  Receipt Date: 20190912
  Transmission Date: 20191005
  Serious: No
  Sender: FDA-Public Use
  Company Number: US-009507513-1909USA001942

PATIENT
  Age: 71 Year
  Sex: Female

DRUGS (4)
  1. PRINIVIL [Suspect]
     Active Substance: LISINOPRIL
     Indication: MITRAL VALVE INCOMPETENCE
  2. PRINIVIL [Suspect]
     Active Substance: LISINOPRIL
     Indication: EJECTION FRACTION
     Route: 048
  3. METOPROLOL. [Concomitant]
     Active Substance: METOPROLOL
  4. PRINIVIL [Suspect]
     Active Substance: LISINOPRIL
     Indication: LEFT VENTRICULAR ENLARGEMENT

REACTIONS (1)
  - Product use in unapproved indication [Unknown]
